FAERS Safety Report 9220026 (Version 2)
Quarter: 2013Q2

REPORT INFORMATION
  Report Type: Report from Study
  Country: AU (occurrence: AU)
  Receive Date: 20130409
  Receipt Date: 20130418
  Transmission Date: 20140414
  Serious: Yes (Hospitalization)
  Sender: FDA-Public Use
  Company Number: AU-ROCHE-1210567

PATIENT
  Age: 53 Year
  Sex: Male

DRUGS (2)
  1. VEMURAFENIB [Suspect]
     Indication: MALIGNANT MELANOMA
     Dosage: DOSE INTERRUPTED ON 27/MAR/2013
     Route: 048
     Dates: start: 20130307
  2. VEMURAFENIB [Suspect]
     Route: 065
     Dates: start: 20130404

REACTIONS (1)
  - Abdominal pain [Recovered/Resolved]
